FAERS Safety Report 5502996-3 (Version None)
Quarter: 2007Q4

REPORT INFORMATION
  Report Type: 
  Country: None (occurrence: None)
  Receive Date: 20071029
  Receipt Date: 20071029
  Transmission Date: 20080405
  Serious: Yes (Hospitalization)
  Sender: FDA-Public Use
  Company Number: None

PATIENT
  Age: 48 Year
  Sex: Male
  Weight: 58 kg

DRUGS (3)
  1. OXALIPLATIN [Suspect]
     Indication: GASTRIC CANCER
     Dosage: Q21 DAYS IV DRIP
     Route: 041
     Dates: start: 20070619, end: 20071001
  2. BEVACIZUMAB [Suspect]
     Indication: GASTRIC CANCER
     Dosage: 7.5MG/KG Q 21 DAYS IV DRIP
     Route: 041
     Dates: start: 20070619, end: 20071001
  3. DOCETAXEL [Suspect]

REACTIONS (3)
  - DEHYDRATION [None]
  - NAUSEA [None]
  - VOMITING [None]
